FAERS Safety Report 16981114 (Version 3)
Quarter: 2019Q4

REPORT INFORMATION
  Report Type: Report from Study
  Country: FR (occurrence: FR)
  Receive Date: 20191031
  Receipt Date: 20191104
  Transmission Date: 20200122
  Serious: Yes (Death, Other)
  Sender: FDA-Public Use
  Company Number: FR-JAZZ-2019-FR-015006

PATIENT

DRUGS (1)
  1. DEFITELIO [Suspect]
     Active Substance: DEFIBROTIDE SODIUM
     Indication: VENOOCCLUSIVE LIVER DISEASE
     Dosage: 25 MG/KG/DAY
     Route: 065
     Dates: start: 20170830, end: 20170921

REACTIONS (13)
  - Hepatic function abnormal [Unknown]
  - Pain [Unknown]
  - Intentional product use issue [Unknown]
  - Hepatomegaly [Unknown]
  - Abnormal behaviour [Unknown]
  - Sensory loss [Unknown]
  - Hepatocellular injury [Unknown]
  - Splenomegaly [Unknown]
  - Haemangioma [Unknown]
  - Fall [Unknown]
  - Jaundice cholestatic [Unknown]
  - Consciousness fluctuating [Unknown]
  - Acute lymphocytic leukaemia recurrent [Fatal]

NARRATIVE: CASE EVENT DATE: 20170830
